FAERS Safety Report 5403807-7 (Version None)
Quarter: 2007Q3

REPORT INFORMATION
  Report Type: 
  Country: None (occurrence: None)
  Receive Date: 20070731
  Receipt Date: 20070731
  Transmission Date: 20080115
  Serious: Yes (Disabling)
  Sender: FDA-Public Use
  Company Number: None

PATIENT
  Sex: Female
  Weight: 81.6475 kg

DRUGS (6)
  1. MIRAPEX [Suspect]
     Indication: FIBROMYALGIA
     Dosage: 1 MG 2 NIGHTLY PO
     Route: 048
     Dates: start: 20030801, end: 20070717
  2. SYNTHROID [Concomitant]
  3. VITAMIN [Concomitant]
  4. ZOLOFT [Concomitant]
  5. VYTORIN [Concomitant]
  6. VESICARE [Concomitant]

REACTIONS (5)
  - ECONOMIC PROBLEM [None]
  - LEGAL PROBLEM [None]
  - PATHOLOGICAL GAMBLING [None]
  - THINKING ABNORMAL [None]
  - URINARY INCONTINENCE [None]
